FAERS Safety Report 4945689-3 (Version None)
Quarter: 2006Q1

REPORT INFORMATION
  Report Type: 
  Country: None (occurrence: None)
  Receive Date: 20060316
  Receipt Date: 20050620
  Transmission Date: 20060701
  Serious: Yes (Other)
  Sender: FDA-Public Use
  Company Number: CA-AMGEN-US139621

PATIENT
  Sex: Male

DRUGS (3)
  1. ENBREL [Suspect]
     Indication: PSORIATIC ARTHROPATHY
     Route: 058
     Dates: start: 20050412, end: 20050524
  2. METFORMIN [Concomitant]
  3. DICLOFENAC EPOLAMINE PATCH [Concomitant]
     Dates: start: 20050412, end: 20050808

REACTIONS (3)
  - CONDITION AGGRAVATED [None]
  - HEPATIC ENZYME INCREASED [None]
  - HEPATITIS B [None]
